FAERS Safety Report 24845058 (Version 1)
Quarter: 2025Q1

REPORT INFORMATION
  Report Type: Spontaneous
  Country: US (occurrence: None)
  Receive Date: 20250115
  Receipt Date: 20250115
  Transmission Date: 20250409
  Serious: Yes (Hospitalization)
  Sender: FDA-CTU
  Company Number: None

PATIENT
  Age: 35 Year
  Sex: Male

DRUGS (1)
  1. TRIUMEQ [Suspect]
     Active Substance: ABACAVIR SULFATE\DOLUTEGRAVIR SODIUM\LAMIVUDINE
     Indication: HIV infection
     Dosage: OTHER QUANTITY : 600/50/300;?FREQUENCY : DAILY;?
     Route: 048
     Dates: start: 202201

REACTIONS (3)
  - Pancreatitis [None]
  - Acute kidney injury [None]
  - Therapy change [None]

NARRATIVE: CASE EVENT DATE: 20240801
